FAERS Safety Report 21571743 (Version 1)
Quarter: 2022Q4

REPORT INFORMATION
  Report Type: Spontaneous
  Country: US (occurrence: None)
  Receive Date: 20221108
  Receipt Date: 20221108
  Transmission Date: 20230113
  Serious: Yes (Other)
  Sender: FDA-Public Use
  Company Number: None

PATIENT
  Age: 58 Year
  Sex: Female
  Weight: 112.5 kg

DRUGS (1)
  1. THERAWORX RELIEF MUSCLE CRAMP AND SPASM RELIEF [Suspect]
     Active Substance: MAGNESIUM SULFATE HEPTAHYDRATE
     Indication: Muscle spasms
     Dosage: FREQUENCY : AS NEEDED;?
     Route: 061
     Dates: start: 20221012, end: 20221012

REACTIONS (2)
  - Application site burn [None]
  - Third degree chemical burn of skin [None]

NARRATIVE: CASE EVENT DATE: 20221012
